FAERS Safety Report 9207971 (Version 2)
Quarter: 2013Q2

REPORT INFORMATION
  Report Type: Spontaneous
  Country: US (occurrence: US)
  Receive Date: 20130403
  Receipt Date: 20130422
  Transmission Date: 20140414
  Serious: Yes (Other)
  Sender: FDA-Public Use
  Company Number: US-ALEXION-A201300060

PATIENT
  Sex: Female

DRUGS (1)
  1. SOLIRIS 300MG [Suspect]
     Indication: PAROXYSMAL NOCTURNAL HAEMOGLOBINURIA
     Dosage: UNK
     Route: 042

REACTIONS (21)
  - Systemic lupus erythematosus [Unknown]
  - T-cell lymphoma [Unknown]
  - B-cell lymphoma [Unknown]
  - Sarcoidosis [Unknown]
  - Splenomegaly [Unknown]
  - Splenic lesion [Unknown]
  - Erythema nodosum [Unknown]
  - Blood immunoglobulin G decreased [Unknown]
  - Night sweats [Unknown]
  - Dry eye [Unknown]
  - Dry mouth [Unknown]
  - Dyspnoea [Unknown]
  - Lymphadenopathy [Unknown]
  - Antinuclear antibody increased [Unknown]
  - Fibrin D dimer increased [Unknown]
  - Pruritus [Unknown]
  - Fatigue [Unknown]
  - Myalgia [Unknown]
  - Pyrexia [Unknown]
  - Pain in extremity [Unknown]
  - Arthralgia [Unknown]
